FAERS Safety Report 12789980 (Version 5)
Quarter: 2017Q1

REPORT INFORMATION
  Report Type: Spontaneous
  Country: US (occurrence: US)
  Receive Date: 20160928
  Receipt Date: 20170111
  Transmission Date: 20170428
  Serious: Yes (Other)
  Sender: FDA-Public Use
  Company Number: US-PFIZER INC-2016453219

PATIENT
  Age: 67 Year
  Sex: Female
  Weight: 62 kg

DRUGS (9)
  1. CHANTIX [Suspect]
     Active Substance: VARENICLINE TARTRATE
     Indication: TOBACCO ABUSE
     Dosage: 1 MG, 2X/DAY
     Route: 048
     Dates: start: 20160421, end: 20160530
  2. LORAZEPAM. [Concomitant]
     Active Substance: LORAZEPAM
     Indication: BLOOD PRESSURE ABNORMAL
     Dosage: 30 MG, 1X/DAY, AT NIGHT
     Route: 048
     Dates: start: 2006
  3. SEROTONIN [Concomitant]
     Active Substance: SEROTONIN
     Indication: DEPRESSION
     Dosage: 100 MG, 1X/DAY
     Dates: start: 2006
  4. CHANTIX [Suspect]
     Active Substance: VARENICLINE TARTRATE
     Indication: SMOKING CESSATION THERAPY
     Dosage: 1 MG, 2X/DAY, MORNING AND EVENING
     Route: 048
     Dates: start: 20160214, end: 20160228
  5. ATORVASTATIN [Concomitant]
     Active Substance: ATORVASTATIN
     Indication: BLOOD CHOLESTEROL
     Dosage: 40 MG, 1X/DAY
     Route: 048
     Dates: start: 2006
  6. SUMATRIPTAN. [Concomitant]
     Active Substance: SUMATRIPTAN
     Indication: MIGRAINE
     Dosage: 6 MG, AS NEEDED
     Dates: start: 2006
  7. FENOFIBRATE. [Concomitant]
     Active Substance: FENOFIBRATE
     Indication: BLOOD CHOLESTEROL
     Dosage: 160 MG, 1X/DAY
     Route: 048
     Dates: start: 2006
  8. LORAZEPAM. [Concomitant]
     Active Substance: LORAZEPAM
     Indication: BLOOD CHOLESTEROL
  9. AZOR [Concomitant]
     Active Substance: AMLODIPINE BESYLATE\OLMESARTAN MEDOXOMIL
     Indication: BLOOD PRESSURE ABNORMAL
     Dosage: UNK , ^40 MG^ 2X/DAY
     Route: 048
     Dates: start: 2006

REACTIONS (5)
  - Disease recurrence [Unknown]
  - Chronic obstructive pulmonary disease [Not Recovered/Not Resolved]
  - Weight increased [Unknown]
  - Condition aggravated [Not Recovered/Not Resolved]
  - Emphysema [Unknown]

NARRATIVE: CASE EVENT DATE: 2016
